FAERS Safety Report 8503507-0 (Version None)
Quarter: 2012Q3

REPORT INFORMATION
  Report Type: 
  Country: None (occurrence: None)
  Receive Date: 20120711
  Receipt Date: 20120702
  Transmission Date: 20120928
  Serious: Yes (Other)
  Sender: FDA-Public Use
  Company Number: US-ASTRAZENECA-2012SE39058

PATIENT
  Age: 48 Year
  Sex: Female

DRUGS (2)
  1. ATACAND [Suspect]
     Route: 048
  2. NEXIUM [Suspect]
     Route: 048

REACTIONS (6)
  - BLOOD PRESSURE INCREASED [None]
  - DIABETES MELLITUS [None]
  - BREAST CANCER [None]
  - BLISTER [None]
  - DRUG DOSE OMISSION [None]
  - HYPERSENSITIVITY [None]
